FAERS Safety Report 4693590-5 (Version None)
Quarter: 2005Q2

REPORT INFORMATION
  Report Type: 
  Country: None (occurrence: None)
  Receive Date: 20050613
  Receipt Date: 20050511
  Transmission Date: 20051028
  Serious: No
  Sender: FDA-Public Use
  Company Number: 2005-01090

PATIENT
  Age: 67 Year
  Sex: Female
  Weight: 70.3 kg

DRUGS (16)
  1. VELCADE [Suspect]
     Indication: MULTIPLE MYELOMA
     Dates: start: 20050201, end: 20050510
  2. DIFLUCAN [Concomitant]
  3. ALLEGRA [Concomitant]
  4. AVANDIA [Concomitant]
  5. LOPRESSOR [Concomitant]
  6. VASOTEC [Concomitant]
  7. COUMADIN [Concomitant]
  8. PEPCID [Concomitant]
  9. FIORICET [Concomitant]
  10. KYTRIL [Concomitant]
  11. ZOFRAN [Concomitant]
  12. NEURONTIN [Concomitant]
  13. VITAMIN B6 [Concomitant]
  14. VICODIN [Concomitant]
  15. PHENERGAN CREAM ^THERAPLIX^ (PROMETHAZINE) [Concomitant]
  16. RESTORIL [Concomitant]

REACTIONS (1)
  - NEUROPATHY [None]
